FAERS Safety Report 5642894-8 (Version None)
Quarter: 2008Q1

REPORT INFORMATION
  Report Type: 
  Country: None (occurrence: None)
  Receive Date: 20080227
  Receipt Date: 20080227
  Transmission Date: 20080703
  Serious: Yes (Disabling, Other)
  Sender: FDA-Public Use
  Company Number: None

PATIENT
  Age: 3 Year
  Sex: Male
  Weight: 72.5755 kg

DRUGS (2)
  1. LEVAQUIN [Suspect]
     Indication: PROSTATE INFECTION
     Dosage: 500 MG  ONCE DAILY  PO
     Route: 048
     Dates: start: 20051110, end: 20051130
  2. CIPROFLOXACIN [Suspect]
     Indication: PROSTATE INFECTION
     Dosage: 500 MG. TWICE DAILY PO
     Route: 048
     Dates: start: 20051201, end: 20060201

REACTIONS (4)
  - ARTHRALGIA [None]
  - PALPITATIONS [None]
  - TENDON PAIN [None]
  - VITREOUS FLOATERS [None]
